FAERS Safety Report 16249022 (Version 2)
Quarter: 2019Q2

REPORT INFORMATION
  Report Type: Spontaneous
  Country: US (occurrence: US)
  Receive Date: 20190429
  Receipt Date: 20190624
  Transmission Date: 20190711
  Serious: No
  Sender: FDA-Public Use
  Company Number: US-TEVA-2019-US-1031724

PATIENT
  Sex: Female

DRUGS (2)
  1. BENLYSTA [Concomitant]
     Active Substance: BELIMUMAB
     Route: 065
  2. AJOVY [Suspect]
     Active Substance: FREMANEZUMAB-VFRM
     Route: 065
     Dates: start: 2019

REACTIONS (1)
  - Adverse drug reaction [Unknown]
